FAERS Safety Report 7354184-6 (Version None)
Quarter: 2011Q1

REPORT INFORMATION
  Report Type: 
  Country: None (occurrence: None)
  Receive Date: 20110316
  Receipt Date: 20110307
  Transmission Date: 20110831
  Serious: Yes (Hospitalization)
  Sender: FDA-Public Use
  Company Number: US-BIOGENIDEC-2010BI024203

PATIENT
  Age: 71 Year
  Sex: Female
  Weight: 45 kg

DRUGS (3)
  1. AVONEX [Suspect]
     Indication: MULTIPLE SCLEROSIS
     Route: 030
  2. SYNTHROID [Concomitant]
     Indication: THYROID DISORDER
  3. AVONEX [Suspect]
     Route: 030
     Dates: start: 19981201

REACTIONS (8)
  - LOCALISED INFECTION [None]
  - DRUG INEFFECTIVE [None]
  - ROAD TRAFFIC ACCIDENT [None]
  - HYPERTENSION [None]
  - WEIGHT DECREASED [None]
  - SKIN DISCOLOURATION [None]
  - SPINAL FRACTURE [None]
  - DECREASED APPETITE [None]
